FAERS Safety Report 14635877 (Version 3)
Quarter: 2018Q2

REPORT INFORMATION
  Report Type: Spontaneous
  Country: JP (occurrence: JP)
  Receive Date: 20180314
  Receipt Date: 20180530
  Transmission Date: 20180711
  Serious: Yes (Hospitalization, Other)
  Sender: FDA-Public Use
  Company Number: JP-PFIZER INC-2018098037

PATIENT
  Age: 87 Year
  Sex: Female
  Weight: 35 kg

DRUGS (4)
  1. VITAMIN D /00107901/ [Concomitant]
     Active Substance: ERGOCALCIFEROL
  2. CELECOX [Suspect]
     Active Substance: CELECOXIB
     Indication: OSTEOARTHRITIS
     Dosage: 100 MG, 2X/DAY
     Route: 048
     Dates: start: 20170524, end: 20180307
  3. ALPROSTADIL. [Suspect]
     Active Substance: ALPROSTADIL
     Indication: PERIPHERAL ARTERIAL OCCLUSIVE DISEASE
     Dosage: 10 UG PER ONE TIME, 10 TIMES IN TOTAL
     Route: 041
     Dates: start: 20180201, end: 20180221
  4. BOIOGITO /07975201/ [Concomitant]
     Active Substance: HERBALS

REACTIONS (3)
  - Gastric ulcer [Recovered/Resolved]
  - Peripheral swelling [Recovering/Resolving]
  - Subcutaneous haematoma [Recovering/Resolving]

NARRATIVE: CASE EVENT DATE: 20180307
